FAERS Safety Report 8360820-8 (Version None)
Quarter: 2012Q1

REPORT INFORMATION
  Report Type: 
  Country: None (occurrence: None)
  Receive Date: 20120323
  Receipt Date: 20110303
  Transmission Date: 20120608
  Serious: Yes (Other)
  Sender: FDA-Public Use
  Company Number: 163-21880-11012804

PATIENT
  Sex: Male

DRUGS (13)
  1. FERROUS SULFATE TAB [Concomitant]
  2. VITAMIN D [Concomitant]
  3. NIACIN [Concomitant]
  4. FINASTERIDE [Concomitant]
  5. REVLIMID [Suspect]
     Indication: MULTIPLE MYELOMA
     Dosage: 10 MG, QOD, PO, 10 MG, EVERY THIRD DAY, PO
     Route: 048
     Dates: start: 20100430, end: 20110105
  6. REVLIMID [Suspect]
     Indication: MULTIPLE MYELOMA
     Dosage: 10 MG, QOD, PO, 10 MG, EVERY THIRD DAY, PO
     Route: 048
     Dates: start: 20110105
  7. ASPIRIN [Concomitant]
  8. SIMVASTATIN [Concomitant]
  9. CALCIUM WITH VITAMIN D (CALCIUM WITH VITAMIN D) [Concomitant]
  10. CARVEDILOL [Concomitant]
  11. FISH OIL (FISH OIL) [Concomitant]
  12. DEXAMETHASONE [Concomitant]
  13. AMITRIPTYLINE HCL [Concomitant]

REACTIONS (2)
  - CATARACT [None]
  - DIZZINESS [None]
